FAERS Safety Report 9805619 (Version 1)
Quarter: 2014Q1

REPORT INFORMATION
  Report Type: Spontaneous
  Country: US (occurrence: None)
  Receive Date: 20140108
  Receipt Date: 20140108
  Transmission Date: 20141002
  Serious: Yes (Hospitalization)
  Sender: FDA-Public Use
  Company Number: None

PATIENT
  Age: 62 Year
  Sex: Female
  Weight: 100.8 kg

DRUGS (15)
  1. OFATUMUMAB [Suspect]
     Indication: CHRONIC LYMPHOCYTIC LEUKAEMIA
     Route: 042
     Dates: start: 20130618, end: 20131216
  2. ALEMTUZUMAB [Suspect]
     Indication: CHRONIC LYMPHOCYTIC LEUKAEMIA
     Route: 058
     Dates: start: 20131007, end: 20140103
  3. BACTRIM DS [Concomitant]
  4. CITALOPRAM [Concomitant]
  5. DILTIA XT [Concomitant]
  6. IBUPROFEN [Concomitant]
  7. LASIX [Concomitant]
  8. LIDOCAINE [Concomitant]
  9. METOPROLOL [Concomitant]
  10. MULTIVITAMINS [Concomitant]
  11. OXYCODONE [Concomitant]
  12. VALCYTE [Concomitant]
  13. VITAMIN D3 [Concomitant]
  14. WARFARIN [Concomitant]
  15. ZOLPIDEM [Concomitant]

REACTIONS (10)
  - Pyrexia [None]
  - Cough [None]
  - Headache [None]
  - Sinus headache [None]
  - Pain [None]
  - Fatigue [None]
  - Decreased appetite [None]
  - Malaise [None]
  - Pneumonia [None]
  - Neutrophil count decreased [None]
